FAERS Safety Report 9753885 (Version 3)
Quarter: 2015Q3

REPORT INFORMATION
  Report Type: Spontaneous
  Country: US (occurrence: US)
  Receive Date: 20131213
  Receipt Date: 20150805
  Transmission Date: 20151125
  Serious: No
  Sender: FDA-Public Use
  Company Number: US-GILEAD-2010-0027167

PATIENT
  Age: 50 Year
  Sex: Female
  Weight: 97.52 kg

DRUGS (20)
  1. GABAPENTIN. [Concomitant]
     Active Substance: GABAPENTIN
  2. COREG [Concomitant]
     Active Substance: CARVEDILOL
  3. VITAMIN B12 [Concomitant]
     Active Substance: CYANOCOBALAMIN
  4. ALDACTONE [Concomitant]
     Active Substance: SPIRONOLACTONE
  5. HYDROCODONE BITARTRATE AND ACETAMINOPHEN [Concomitant]
     Active Substance: ACETAMINOPHEN\HYDROCODONE BITARTRATE
  6. PHENERGAN [Concomitant]
     Active Substance: PROMETHAZINE HYDROCHLORIDE
  7. COLACE [Concomitant]
     Active Substance: DOCUSATE SODIUM
  8. REVATIO [Concomitant]
     Active Substance: SILDENAFIL CITRATE
  9. COUMADIN [Concomitant]
     Active Substance: WARFARIN SODIUM
  10. LETAIRIS [Suspect]
     Active Substance: AMBRISENTAN
     Indication: PULMONARY ARTERIAL HYPERTENSION
     Route: 048
     Dates: start: 20090116
  11. VICODIN ES [Concomitant]
     Active Substance: ACETAMINOPHEN\HYDROCODONE BITARTRATE
  12. ZOCOR [Concomitant]
     Active Substance: SIMVASTATIN
  13. NIACIN. [Concomitant]
     Active Substance: NIACIN
  14. OXYGEN. [Concomitant]
     Active Substance: OXYGEN
  15. ALTACE [Concomitant]
     Active Substance: RAMIPRIL
  16. NEURONTIN [Concomitant]
     Active Substance: GABAPENTIN
  17. PYRIDIUM [Concomitant]
     Active Substance: PHENAZOPYRIDINE
  18. BUMEX [Concomitant]
     Active Substance: BUMETANIDE
  19. COMPAZINE [Concomitant]
     Active Substance: PROCHLORPERAZINE MALEATE
  20. ZOLOFT [Concomitant]
     Active Substance: SERTRALINE HYDROCHLORIDE

REACTIONS (1)
  - Hepatic steatosis [Unknown]
